FAERS Safety Report 25187148 (Version 2)
Quarter: 2025Q3

REPORT INFORMATION
  Report Type: Report from Study
  Country: ZA (occurrence: ZA)
  Receive Date: 20250411
  Receipt Date: 20250803
  Transmission Date: 20251021
  Serious: Yes (Hospitalization, Other)
  Sender: ALEXION PHARMACEUTICALS
  Company Number: ZA-AstraZeneca-CH-00841595A

PATIENT
  Age: 73 Year
  Sex: Male

DRUGS (6)
  1. DAPAGLIFLOZIN [Suspect]
     Active Substance: DAPAGLIFLOZIN
     Indication: Type 2 diabetes mellitus
  2. Allergex [Concomitant]
     Indication: Rhinitis
  3. Allergex [Concomitant]
     Indication: Urticaria
  4. Allergex [Concomitant]
     Indication: Rash pruritic
  5. Cyfil [Concomitant]
     Indication: Erectile dysfunction
  6. ENALAPRIL MALEATE [Concomitant]
     Active Substance: ENALAPRIL MALEATE
     Indication: Hypertension

REACTIONS (2)
  - Brain neoplasm [Unknown]
  - Fall [Unknown]
